FAERS Safety Report 9734384 (Version 2)
Quarter: 2014Q2

REPORT INFORMATION
  Report Type: Spontaneous
  Country: US (occurrence: US)
  Receive Date: 20131206
  Receipt Date: 20140414
  Transmission Date: 20141212
  Serious: Yes (Death)
  Sender: FDA-Public Use
  Company Number: US-BIOGENIDEC-2013BI115931

PATIENT
  Age: 45 Year
  Sex: Female
  Weight: 61 kg

DRUGS (9)
  1. TYSABRI [Suspect]
     Indication: MULTIPLE SCLEROSIS
     Route: 042
     Dates: start: 20101012, end: 20131015
  2. VITAMIN D3 [Concomitant]
     Dates: start: 20130220
  3. CALCIUM [Concomitant]
     Dates: start: 20130220
  4. TIZANIDINE [Concomitant]
     Dates: start: 20131123
  5. PRAMIPEXOLE [Concomitant]
  6. CYCLOBENZAPRINE [Concomitant]
  7. CITALOPRAM [Concomitant]
  8. HYDROCODONE-ACETAMINOPHEN [Concomitant]
  9. METHYLPREDNISOLONE SODIUM SUCCINATE [Concomitant]
     Dates: start: 20120710

REACTIONS (2)
  - Death [Fatal]
  - Depression [Not Recovered/Not Resolved]
